FAERS Safety Report 8922315 (Version 1)
Quarter: 2012Q4

REPORT INFORMATION
  Report Type: Report from Study
  Country: JP (occurrence: JP)
  Receive Date: 20121123
  Receipt Date: 20121123
  Transmission Date: 20130627
  Serious: Yes (Death)
  Sender: FDA-Public Use
  Company Number: JP-SANOFI-AVENTIS-2012SA079970

PATIENT
  Age: 83 Year
  Sex: Male
  Weight: 50 kg

DRUGS (9)
  1. RASBURICASE [Suspect]
     Indication: HYPERURICAEMIA
     Route: 042
     Dates: start: 20120928, end: 20121004
  2. ZOSYN [Concomitant]
     Route: 042
     Dates: start: 20120928, end: 20121002
  3. ITRIZOLE [Concomitant]
     Route: 048
     Dates: end: 20121007
  4. ESOMEPRAZOLE MAGNESIUM [Concomitant]
     Route: 048
     Dates: end: 20121007
  5. SELBEX [Concomitant]
     Route: 048
     Dates: end: 20121007
  6. BAKTAR [Concomitant]
     Route: 048
     Dates: end: 20121007
  7. ACETYLSALICYLIC ACID [Concomitant]
     Route: 048
     Dates: start: 20120928, end: 20121004
  8. CYLOCIDE [Concomitant]
     Indication: ACUTE MYELOID LEUKAEMIA
     Dosage: day1-4
     Route: 042
     Dates: start: 20121004, end: 20121007
  9. IDAMYCIN [Concomitant]
     Indication: ACUTE MYELOID LEUKAEMIA
     Dosage: day 1-3
     Route: 042
     Dates: start: 20121004, end: 20121007

REACTIONS (2)
  - Pulmonary embolism [Fatal]
  - Respiratory failure [Fatal]
